FAERS Safety Report 10497835 (Version 1)
Quarter: 2014Q4

REPORT INFORMATION
  Report Type: Spontaneous
  Country: US (occurrence: None)
  Receive Date: 20141003
  Receipt Date: 20141003
  Transmission Date: 20150528
  Serious: Yes (Hospitalization)
  Sender: FDA-Public Use
  Company Number: None

PATIENT
  Age: 69 Year
  Sex: Female
  Weight: 164 kg

DRUGS (14)
  1. OPSUMIT [Suspect]
     Active Substance: MACITENTAN
     Indication: PULMONARY HYPERTENSION
     Dosage: 1, QD, ORAL
     Route: 048
     Dates: start: 20140918, end: 20140925
  2. LOPERAMIDE [Concomitant]
     Active Substance: LOPERAMIDE
  3. METOPROLOL XL [Concomitant]
     Active Substance: METOPROLOL
  4. METOLAZONE. [Concomitant]
     Active Substance: METOLAZONE
  5. MAGOX [Concomitant]
  6. SODIUM POLYSTYRENE [Concomitant]
  7. ALLOPURINOL. [Concomitant]
     Active Substance: ALLOPURINOL
  8. VITAMIN D [Concomitant]
     Active Substance: CHOLECALCIFEROL
  9. GLIMEPIRIDE. [Concomitant]
     Active Substance: GLIMEPIRIDE
  10. TRAMADOL [Concomitant]
     Active Substance: TRAMADOL
  11. VENTOLIN HFA [Concomitant]
     Active Substance: ALBUTEROL SULFATE
  12. SILDENAFIL. [Concomitant]
     Active Substance: SILDENAFIL
  13. LOSARTAN [Concomitant]
     Active Substance: LOSARTAN
  14. FUROSEMIDE. [Concomitant]
     Active Substance: FUROSEMIDE

REACTIONS (3)
  - Peripheral swelling [None]
  - Weight increased [None]
  - Dyspnoea [None]

NARRATIVE: CASE EVENT DATE: 20140923
